FAERS Safety Report 8909972 (Version 1)
Quarter: 2012Q4

REPORT INFORMATION
  Report Type: 
  Country: US (occurrence: US)
  Receive Date: 20121115
  Receipt Date: 20121115
  Transmission Date: 20130627
  Serious: No
  Sender: FDA-Public Use
  Company Number: US-PFIZER INC-2012284362

PATIENT
  Age: 66 Year
  Sex: Male
  Weight: 63.49 kg

DRUGS (4)
  1. CHANTIX [Suspect]
     Indication: SMOKING CESSATION THERAPY
     Dosage: 0.5 mg, daily
     Route: 048
     Dates: start: 201211, end: 201211
  2. CHANTIX [Suspect]
     Dosage: 0.5 mg, 2x/day
     Route: 048
     Dates: start: 201211
  3. LOSARTAN [Concomitant]
     Indication: BLOOD PRESSURE HIGH
     Dosage: 50 mg, daily
  4. CEFDINIR [Concomitant]
     Indication: ANTIBIOTIC THERAPY
     Dosage: 300 mg, 2x/day

REACTIONS (1)
  - Decreased appetite [Unknown]
